FAERS Safety Report 26065212 (Version 2)
Quarter: 2025Q4

REPORT INFORMATION
  Report Type: Spontaneous
  Country: GB (occurrence: GB)
  Receive Date: 20251119
  Receipt Date: 20251120
  Transmission Date: 20260118
  Serious: Yes (Hospitalization, Other)
  Sender: PFIZER
  Company Number: GB-PFIZER INC-PV202500134365

PATIENT
  Age: 86 Year
  Sex: Female

DRUGS (21)
  1. OXALIPLATIN [Interacting]
     Active Substance: OXALIPLATIN
     Indication: Adenocarcinoma gastric stage IV
     Dosage: CYCLIC 1-2
     Dates: start: 202501
  2. OXALIPLATIN [Interacting]
     Active Substance: OXALIPLATIN
     Dosage: CYCLIC 3
     Dates: start: 202502
  3. OXALIPLATIN [Interacting]
     Active Substance: OXALIPLATIN
     Dosage: CYCLIC 4 WITH A DOSE-REDUCED CHEMOTHERAPY REGIMEN (75%)
     Dates: start: 202503
  4. LEUCOVORIN CALCIUM [Interacting]
     Active Substance: LEUCOVORIN CALCIUM
     Indication: Adenocarcinoma gastric stage IV
     Dosage: CYCLIC 1-2
     Dates: start: 202501
  5. LEUCOVORIN CALCIUM [Interacting]
     Active Substance: LEUCOVORIN CALCIUM
     Dosage: CYCLIC 3
     Dates: start: 202502
  6. LEUCOVORIN CALCIUM [Interacting]
     Active Substance: LEUCOVORIN CALCIUM
     Dosage: CYCLIC 4 WITH A DOSE-REDUCED CHEMOTHERAPY REGIMEN (75%)
     Dates: start: 202503
  7. FLUOROURACIL [Interacting]
     Active Substance: FLUOROURACIL
     Indication: Adenocarcinoma gastric stage IV
     Dosage: CYCLIC 1-2
     Dates: start: 202501
  8. FLUOROURACIL [Interacting]
     Active Substance: FLUOROURACIL
     Dosage: CYCLIC 3
     Dates: start: 202502
  9. FLUOROURACIL [Interacting]
     Active Substance: FLUOROURACIL
     Dosage: CYCLIC 4 WITH A DOSE-REDUCED CHEMOTHERAPY REGIMEN (75%)
     Dates: start: 202503
  10. NIVOLUMAB [Interacting]
     Active Substance: NIVOLUMAB
     Indication: Adenocarcinoma gastric stage IV
     Dosage: CYCLIC 1-2
     Dates: start: 202501
  11. NIVOLUMAB [Interacting]
     Active Substance: NIVOLUMAB
     Dosage: CYCLE 3
     Dates: start: 202502
  12. NIVOLUMAB [Interacting]
     Active Substance: NIVOLUMAB
     Dosage: CYCLE 4
     Dates: start: 202503
  13. GRANULOCYTE COLONY-STIMULATING FACTOR NOS [Suspect]
     Active Substance: GRANULOCYTE COLONY-STIMULATING FACTOR NOS
     Indication: Prophylaxis
     Dosage: FROM CYCLE 3 ONWARDS
     Dates: start: 202502
  14. MORPHINE SULFATE [Concomitant]
     Active Substance: MORPHINE SULFATE
     Dosage: UNK
  15. OMEPRAZOLE [Concomitant]
     Active Substance: OMEPRAZOLE
     Dosage: UNK
  16. AMLODIPINE [Concomitant]
     Active Substance: AMLODIPINE BESYLATE
     Dosage: UNK
  17. SENNA LEAF [Concomitant]
     Active Substance: SENNA LEAF
     Dosage: UNK
  18. DIHYDROCODEINE [Concomitant]
     Active Substance: DIHYDROCODEINE
     Dosage: UNK
  19. BECLOMETHASONE DIPROPIONATE [Concomitant]
     Active Substance: BECLOMETHASONE DIPROPIONATE
     Dosage: UNK
  20. DEXAMETHASONE [Concomitant]
     Active Substance: DEXAMETHASONE
     Dosage: ON CHEMOTHERAPY DAYS
  21. TINZAPARIN [Concomitant]
     Active Substance: TINZAPARIN
     Indication: Pulmonary embolism
     Dosage: UNK

REACTIONS (8)
  - Cytokine release syndrome [Recovered/Resolved]
  - Neutropenia [Unknown]
  - Neurotoxicity [Recovered/Resolved]
  - Neutropenic sepsis [Recovering/Resolving]
  - Potentiating drug interaction [Recovered/Resolved]
  - Acute kidney injury [Recovered/Resolved]
  - Stomatitis [Unknown]
  - Fatigue [Unknown]

NARRATIVE: CASE EVENT DATE: 20250101
